FAERS Safety Report 5844810-2 (Version None)
Quarter: 2008Q3

REPORT INFORMATION
  Report Type: 
  Country: None (occurrence: None)
  Receive Date: 20080812
  Receipt Date: 20080730
  Transmission Date: 20090109
  Serious: Yes (Hospitalization, Other)
  Sender: FDA-Public Use
  Company Number: 230577J08CAN

PATIENT
  Age: 45 Year
  Sex: Female

DRUGS (3)
  1. REBIF [Suspect]
     Indication: MULTIPLE SCLEROSIS
     Dates: start: 20030616
  2. PAROXETINE HCL [Concomitant]
  3. GABAPENTIN [Concomitant]

REACTIONS (7)
  - BLOOD PRESSURE INCREASED [None]
  - CONVULSION [None]
  - FATIGUE [None]
  - INJECTION SITE HAEMATOMA [None]
  - MALAISE [None]
  - RENAL FAILURE [None]
  - SCLERODERMA [None]
